FAERS Safety Report 4504126-3 (Version None)
Quarter: 2004Q4

REPORT INFORMATION
  Report Type: 
  Country: None (occurrence: None)
  Receive Date: 20041118
  Receipt Date: 20030327
  Transmission Date: 20050328
  Serious: Yes (Hospitalization, Disabling)
  Sender: FDA-Public Use
  Company Number: IT-ABBOTT-03P-083-0214989-00

PATIENT
  Sex: Female
  Weight: 56 kg

DRUGS (5)
  1. HUMIRA [Suspect]
     Indication: RHEUMATOID ARTHRITIS
     Route: 058
     Dates: start: 20030205, end: 20030219
  2. HYDROXYCHLOROQUINE PHOSPHATE [Concomitant]
     Route: 048
     Dates: start: 19750101, end: 19760101
  3. METHOTREXATE [Concomitant]
     Route: 030
     Dates: start: 19920101, end: 20000101
  4. LEFLUNOMIDE [Concomitant]
     Dates: start: 20000101, end: 20020101
  5. METHYLPREDNISOLONE [Concomitant]
     Route: 048

REACTIONS (11)
  - BLOOD GLUCOSE INCREASED [None]
  - BLOOD UREA INCREASED [None]
  - CULTURE URINE POSITIVE [None]
  - ESCHERICHIA INFECTION [None]
  - GUILLAIN-BARRE SYNDROME [None]
  - HELICOBACTER INFECTION [None]
  - INFLUENZA LIKE ILLNESS [None]
  - LEUKOCYTOSIS [None]
  - MORGANELLA INFECTION [None]
  - NEUTROPENIA [None]
  - SIDEROBLASTIC ANAEMIA [None]
